FAERS Safety Report 14263552 (Version 2)
Quarter: 2017Q4

REPORT INFORMATION
  Report Type: Spontaneous
  Country: US (occurrence: US)
  Receive Date: 20171208
  Receipt Date: 20171213
  Transmission Date: 20180321
  Serious: Yes (Hospitalization, Other)
  Sender: FDA-Public Use
  Company Number: US-PFIZER INC-2017525001

PATIENT
  Age: 71 Year
  Sex: Female

DRUGS (2)
  1. LATARIZ [Concomitant]
     Indication: PULMONARY HYPERTENSION
     Dosage: 10 MG, 1X/DAY
  2. REVATIO [Suspect]
     Active Substance: SILDENAFIL CITRATE
     Indication: PULMONARY HYPERTENSION
     Dosage: 40 MG, 3X/DAY
     Route: 048

REACTIONS (4)
  - Hip fracture [Recovering/Resolving]
  - Joint dislocation [Recovering/Resolving]
  - Fall [Recovering/Resolving]
  - Upper limb fracture [Recovering/Resolving]

NARRATIVE: CASE EVENT DATE: 20170919
